FAERS Safety Report 21922965 (Version 1)
Quarter: 2023Q1

REPORT INFORMATION
  Report Type: Spontaneous
  Country: US (occurrence: US)
  Receive Date: 20230128
  Receipt Date: 20230128
  Transmission Date: 20230417
  Serious: No
  Sender: FDA-Public Use
  Company Number: US-SA-SAC20230125000337

PATIENT
  Sex: Female

DRUGS (1)
  1. DUPIXENT [Suspect]
     Active Substance: DUPILUMAB
     Dosage: 300 MG, OTHER
     Route: 058

REACTIONS (5)
  - Injection site pain [Unknown]
  - Injection site urticaria [Unknown]
  - Hordeolum [Unknown]
  - Parosmia [Not Recovered/Not Resolved]
  - Pruritus [Recovering/Resolving]
